FAERS Safety Report 8542344-8 (Version None)
Quarter: 2012Q3

REPORT INFORMATION
  Report Type: 
  Country: None (occurrence: None)
  Receive Date: 20120726
  Receipt Date: 20110812
  Transmission Date: 20120928
  Serious: Yes (Hospitalization)
  Sender: FDA-Public Use
  Company Number: US-ASTRAZENECA-2011SE48573

PATIENT
  Age: 30 Year
  Sex: Female
  Weight: 59 kg

DRUGS (7)
  1. KLONOPIN [Concomitant]
     Indication: ANXIETY DISORDER
     Route: 048
  2. DEPAKOTE [Concomitant]
     Indication: ANXIETY DISORDER
     Route: 048
  3. SEROQUEL XR [Suspect]
     Indication: BIPOLAR DISORDER
     Route: 048
  4. DEPAKOTE [Concomitant]
     Indication: POST-TRAUMATIC STRESS DISORDER
     Route: 048
  5. DEPAKOTE [Concomitant]
     Indication: BIPOLAR DISORDER
     Route: 048
  6. KLONOPIN [Concomitant]
     Indication: BIPOLAR DISORDER
     Route: 048
  7. KLONOPIN [Concomitant]
     Indication: POST-TRAUMATIC STRESS DISORDER
     Route: 048

REACTIONS (7)
  - ABDOMINAL DISCOMFORT [None]
  - DRUG DOSE OMISSION [None]
  - NAUSEA [None]
  - WITHDRAWAL SYNDROME [None]
  - PARANOIA [None]
  - CONVULSION [None]
  - INSOMNIA [None]
